FAERS Safety Report 6263467-2 (Version None)
Quarter: 2009Q3

REPORT INFORMATION
  Report Type: 
  Country: None (occurrence: None)
  Receive Date: 20090710
  Receipt Date: 20090403
  Transmission Date: 20100115
  Serious: No
  Sender: FDA-Public Use
  Company Number: A0777118A

PATIENT
  Age: 76 Year
  Sex: Male

DRUGS (3)
  1. FLOVENT [Suspect]
     Indication: CHRONIC OBSTRUCTIVE PULMONARY DISEASE
     Route: 055
     Dates: start: 20081101
  2. VITAMINS [Concomitant]
  3. OXYGEN [Concomitant]

REACTIONS (2)
  - DRUG ADMINISTRATION ERROR [None]
  - EYE BURNS [None]
